FAERS Safety Report 10469887 (Version 1)
Quarter: 2014Q3

REPORT INFORMATION
  Report Type: Report from Study
  Country: US (occurrence: US)
  Receive Date: 20140923
  Receipt Date: 20140923
  Transmission Date: 20150326
  Serious: Yes (Other)
  Sender: FDA-Public Use
  Company Number: US-ALEXION-A200700295

PATIENT
  Sex: Male

DRUGS (1)
  1. SOLIRIS [Suspect]
     Active Substance: ECULIZUMAB
     Indication: PAROXYSMAL NOCTURNAL HAEMOGLOBINURIA
     Dosage: UNK
     Route: 042

REACTIONS (12)
  - Blood count abnormal [Unknown]
  - Chromaturia [Unknown]
  - Viral infection [Unknown]
  - Feeling abnormal [Unknown]
  - Fatigue [Unknown]
  - Stress [Unknown]
  - Packed red blood cell transfusion [Unknown]
  - Depression [Unknown]
  - Blood lactate dehydrogenase increased [Unknown]
  - Haemolysis [Unknown]
  - Haemoglobinuria [Unknown]
  - Dysphagia [Unknown]
